FAERS Safety Report 11325506 (Version 1)
Quarter: 2015Q3

REPORT INFORMATION
  Report Type: Spontaneous
  Country: US (occurrence: US)
  Receive Date: 20150731
  Receipt Date: 20150731
  Transmission Date: 20151125
  Serious: Yes (Hospitalization)
  Sender: FDA-Public Use
  Company Number: US-JNJFOC-20150717305

PATIENT
  Age: 24 Year
  Sex: Male
  Weight: 63.5 kg

DRUGS (3)
  1. POLYSORBATE 80. [Suspect]
     Active Substance: POLYSORBATE 80
     Indication: EUPHORIC MOOD
     Route: 065
  2. IMODIUM A-D [Suspect]
     Active Substance: LOPERAMIDE HYDROCHLORIDE
     Route: 065
  3. IMODIUM A-D [Suspect]
     Active Substance: LOPERAMIDE HYDROCHLORIDE
     Indication: EUPHORIC MOOD
     Route: 065

REACTIONS (7)
  - Intentional product misuse [Unknown]
  - Faecaloma [Not Recovered/Not Resolved]
  - Product use issue [Unknown]
  - Incorrect route of drug administration [Unknown]
  - Intentional overdose [Unknown]
  - Drug abuse [Unknown]
  - Arrhythmia [Not Recovered/Not Resolved]
